FAERS Safety Report 4699536-8 (Version None)
Quarter: 2005Q2

REPORT INFORMATION
  Report Type: 
  Country: None (occurrence: None)
  Receive Date: 20050622
  Receipt Date: 20050606
  Transmission Date: 20051028
  Serious: Yes (Other)
  Sender: FDA-Public Use
  Company Number: 2005-DE-02116GD

PATIENT
  Sex: Female

DRUGS (3)
  1. PREDNISONE [Suspect]
  2. FAMOTIDINE [Suspect]
     Dosage: DURING 2-5 WEEKS OF PREGNANCY
  3. SUCRALFATE [Suspect]

REACTIONS (2)
  - ABORTION INDUCED [None]
  - DRUG EXPOSURE DURING PREGNANCY [None]
